FAERS Safety Report 4982688-X (Version None)
Quarter: 2006Q2

REPORT INFORMATION
  Report Type: 
  Country: None (occurrence: None)
  Receive Date: 20060425
  Receipt Date: 20051221
  Transmission Date: 20061013
  Serious: Yes (Death, Hospitalization, Disabling, Other)
  Sender: FDA-Public Use
  Company Number: US-MERCK-0512USA03650

PATIENT
  Age: 42 Year
  Sex: Male

DRUGS (2)
  1. VIOXX [Suspect]
     Indication: ARTHRITIS
     Route: 048
     Dates: start: 20021101, end: 20031001
  2. VIOXX [Suspect]
     Route: 048
     Dates: start: 20021101, end: 20031001

REACTIONS (9)
  - CEREBRAL INFARCTION [None]
  - CEREBROVASCULAR ACCIDENT [None]
  - DEEP VEIN THROMBOSIS [None]
  - GASTROINTESTINAL DISORDER [None]
  - HYPERTENSIVE HEART DISEASE [None]
  - MYOCARDIAL INFARCTION [None]
  - NERVOUS SYSTEM DISORDER [None]
  - OEDEMA PERIPHERAL [None]
  - PULMONARY THROMBOSIS [None]
